FAERS Safety Report 6304057-2 (Version None)
Quarter: 2009Q3

REPORT INFORMATION
  Report Type: 
  Country: None (occurrence: None)
  Receive Date: 20090810
  Receipt Date: 20090729
  Transmission Date: 20100115
  Serious: Yes (Death)
  Sender: FDA-Public Use
  Company Number: JP-PFIZER INC-2009246426

PATIENT
  Age: 60 Year

DRUGS (3)
  1. ZITHROMAX [Suspect]
     Indication: RESPIRATORY DISORDER
     Dosage: UNK
     Route: 048
     Dates: start: 20090721
  2. ASTOMIN [Concomitant]
     Route: 048
     Dates: start: 20090721
  3. TRANSAMIN [Concomitant]
     Route: 048
     Dates: start: 20090721

REACTIONS (1)
  - DEATH [None]
